FAERS Safety Report 14940020 (Version 4)
Quarter: 2018Q3

REPORT INFORMATION
  Report Type: Spontaneous
  Country: US (occurrence: US)
  Receive Date: 20180525
  Receipt Date: 20180814
  Transmission Date: 20181010
  Serious: Yes (Hospitalization, Other)
  Sender: FDA-Public Use
  Company Number: US-TAKEDA-2018MPI005824

PATIENT
  Age: 71 Year
  Sex: Male
  Weight: 157 kg

DRUGS (1)
  1. NINLARO [Suspect]
     Active Substance: IXAZOMIB CITRATE
     Indication: PLASMA CELL MYELOMA
     Dosage: 3 MG, UNK
     Route: 048
     Dates: start: 20180426

REACTIONS (7)
  - White blood cell count decreased [Unknown]
  - Insomnia [Unknown]
  - Sepsis [Unknown]
  - Gastrointestinal infection [Unknown]
  - Pneumonia [Unknown]
  - Anxiety [Unknown]
  - Full blood count decreased [Unknown]

NARRATIVE: CASE EVENT DATE: 20180507
